FAERS Safety Report 4562984-0 (Version None)
Quarter: 2005Q1

REPORT INFORMATION
  Report Type: 
  Country: None (occurrence: None)
  Receive Date: 20050121
  Receipt Date: 20041228
  Transmission Date: 20050727
  Serious: No
  Sender: FDA-Public Use
  Company Number: 2005002058

PATIENT
  Age: 50 Year
  Sex: Female

DRUGS (6)
  1. MEDROXYPROGESTERONE ACETATE [Suspect]
     Indication: BREAST CANCER
     Dosage: 800 MG (800 MG, DAILY), ORAL
     Route: 048
     Dates: start: 20020410, end: 20040628
  2. DOXIFLURIDINE                         (DOXIFLURIDINE) [Concomitant]
  3. ANASTROZOLE      (ANASTROZOLE) [Concomitant]
  4. VOGLIBOSE     (VOGLIBOSE) [Concomitant]
  5. GLIMEPIRIDE [Concomitant]
  6. GLYBURIDE [Concomitant]

REACTIONS (3)
  - ALOPECIA [None]
  - HYPERGLYCAEMIA [None]
  - HYPOAESTHESIA [None]
